FAERS Safety Report 5418257-7 (Version None)
Quarter: 2007Q3

REPORT INFORMATION
  Report Type: 
  Country: None (occurrence: None)
  Receive Date: 20070817
  Receipt Date: 20070810
  Transmission Date: 20080115
  Serious: Yes (Other)
  Sender: FDA-Public Use
  Company Number: B0472546A

PATIENT
  Age: 73 Year
  Sex: Male
  Weight: 98 kg

DRUGS (6)
  1. AVODART [Suspect]
     Indication: DRUG USE FOR UNKNOWN INDICATION
     Dosage: .5MG PER DAY
     Route: 048
     Dates: start: 20061213, end: 20070425
  2. PLAVIX [Concomitant]
     Dosage: 75MG PER DAY
     Route: 048
  3. IRBESARTAN [Concomitant]
     Dosage: 150MG PER DAY
     Route: 048
  4. ATORVASTATIN CALCIUM [Concomitant]
     Dosage: 20MG PER DAY
     Route: 048
  5. LANSOPRAZOLE [Concomitant]
  6. INFLAMAC [Concomitant]

REACTIONS (4)
  - ABDOMINAL PAIN [None]
  - CALCULUS URINARY [None]
  - NEPHROLITHIASIS [None]
  - RENAL COLIC [None]
